FAERS Safety Report 8880644 (Version 1)
Quarter: 2012Q4

REPORT INFORMATION
  Report Type: 
  Country: GB (occurrence: GB)
  Receive Date: 20121031
  Receipt Date: 20121031
  Transmission Date: 20130627
  Serious: Yes (Other)
  Sender: FDA-Public Use
  Company Number: GB-ROCHE-1150732

PATIENT
  Age: 23 Year
  Sex: Male
  Weight: 84 kg

DRUGS (2)
  1. ROACCUTANE [Suspect]
     Indication: PRODUCT USED FOR UNKNOWN INDICATION
     Route: 065
     Dates: start: 20121001, end: 20121001
  2. PARACETAMOL [Concomitant]

REACTIONS (2)
  - Lip dry [Unknown]
  - Foreign body sensation in eyes [Not Recovered/Not Resolved]
